FAERS Safety Report 16366593 (Version 1)
Quarter: 2019Q3

REPORT INFORMATION
  Report Type: Spontaneous
  Country: US (occurrence: US)
  Receive Date: 20190528
  Receipt Date: 20190528
  Transmission Date: 20191004
  Serious: No
  Sender: FDA-Public Use
  Company Number: None

PATIENT
  Sex: Male

DRUGS (2)
  1. SERTRALINE 150MGS [Suspect]
     Active Substance: SERTRALINE HYDROCHLORIDE
  2. REMERON [Suspect]
     Active Substance: MIRTAZAPINE

REACTIONS (2)
  - Therapy non-responder [None]
  - Dizziness [None]
